FAERS Safety Report 5391241-8 (Version None)
Quarter: 2007Q3

REPORT INFORMATION
  Report Type: 
  Country: None (occurrence: None)
  Receive Date: 20070717
  Receipt Date: 20070711
  Transmission Date: 20080115
  Serious: Yes (Hospitalization)
  Sender: FDA-Public Use
  Company Number: 2007326329

PATIENT
  Age: 67 Year
  Sex: Female

DRUGS (2)
  1. ROGAINE [Suspect]
     Indication: ALOPECIA
     Dosage: UNSPECIFIED,TOPICAL
     Route: 061
  2. DIURETICS (DIURETICS) [Concomitant]

REACTIONS (2)
  - ALOPECIA [None]
  - BLOOD PRESSURE INCREASED [None]
